FAERS Safety Report 7801960-9 (Version None)
Quarter: 2011Q4

REPORT INFORMATION
  Report Type: 
  Country: None (occurrence: None)
  Receive Date: 20111007
  Receipt Date: 20111007
  Transmission Date: 20120403
  Serious: No
  Sender: FDA-Public Use
  Company Number: None

PATIENT
  Age: 62 Year
  Sex: Male
  Weight: 73.481 kg

DRUGS (1)
  1. SULFAMETHOXAZOLE AND TRIMETHOPRIM DOUBLE STRENGTH [Suspect]
     Indication: INFECTION
     Dosage: 1 TABLET
     Route: 048
     Dates: start: 20110930, end: 20111009

REACTIONS (4)
  - PRODUCT SOLUBILITY ABNORMAL [None]
  - DYSPHAGIA [None]
  - PRODUCT PHYSICAL ISSUE [None]
  - PRODUCT COATING ISSUE [None]
